FAERS Safety Report 12511165 (Version 1)
Quarter: 2016Q2

REPORT INFORMATION
  Report Type: Spontaneous
  Country: US (occurrence: US)
  Receive Date: 20160629
  Receipt Date: 20160629
  Transmission Date: 20160815
  Serious: Yes (Other)
  Sender: FDA-Public Use
  Company Number: US-ASTRAZENECA-2016SE68720

PATIENT
  Sex: Female

DRUGS (21)
  1. CRESTOR [Suspect]
     Active Substance: ROSUVASTATIN CALCIUM
     Route: 048
  2. VITAMIN C [Concomitant]
     Active Substance: ASCORBIC ACID
     Dosage: ONE DAILY BY MOUTH
     Route: 048
  3. PROAIR HFA [Concomitant]
     Active Substance: ALBUTEROL SULFATE
     Indication: ASTHMA
     Dosage: 108 (90 BASE) MCG/ACT AERS WO PUFFS EVERY FOUR HOURS IF NEEDED
  4. CALCIUM CITRATE [Concomitant]
     Active Substance: CALCIUM CITRATE
     Dosage: 1 TAB BY MOUTH DAILY
     Route: 048
  5. AMLODIPINE BESYLATE. [Concomitant]
     Active Substance: AMLODIPINE BESYLATE
     Dosage: 5 MGO NE HALF LAB BY MOUTH DAILY
     Route: 048
  6. NITROSTAT [Suspect]
     Active Substance: NITROGLYCERIN
     Indication: CHEST PAIN
     Dosage: 0.4 MG DISSOLVE ONT TAB UNDER TOUGUE EVERY FIVE MIN AS NEEDED DO NOT TAKE MORE THAN 3 IN 15 MIN. ...
     Route: 060
  7. CLOPIDOGREL BISULFATE. [Concomitant]
     Active Substance: CLOPIDOGREL BISULFATE
     Route: 048
  8. FISH OIL [Concomitant]
     Active Substance: FISH OIL
     Dosage: ONE DAILY BY MOUTH
     Route: 048
  9. COQ10 [Concomitant]
     Active Substance: UBIDECARENONE
     Dosage: TAKE ONE TAB
     Route: 048
  10. LISINOPRIL. [Suspect]
     Active Substance: LISINOPRIL
     Route: 048
  11. NITROSTAT [Suspect]
     Active Substance: NITROGLYCERIN
     Indication: CHEST PAIN
     Dosage: 0.4MG AS REQUIRED
     Route: 060
  12. METOPROLOL TARTRATE. [Suspect]
     Active Substance: METOPROLOL TARTRATE
     Dosage: 25 MG ONE HALF BY MOUTH TWICE DAILY
     Route: 048
  13. AROMASIN [Suspect]
     Active Substance: EXEMESTANE
     Route: 048
  14. HYDROXYZINE HCL [Concomitant]
     Active Substance: HYDROXYZINE HYDROCHLORIDE
     Route: 048
  15. DYNACIRC CR [Concomitant]
     Active Substance: ISRADIPINE
     Route: 048
  16. MAGNESIUM [Concomitant]
     Active Substance: MAGNESIUM
     Dosage: ONE DAILY
     Route: 048
  17. CLONAZEPAM. [Concomitant]
     Active Substance: CLONAZEPAM
     Dosage: 0.5 MG TABS 1/2 TABLET BY MOUTH IN THE MORNING + 1 TABLET BY MOUTH AT
     Route: 048
  18. EXEMESTANE. [Concomitant]
     Active Substance: EXEMESTANE
  19. LEVOTHYROXINE SODIUM. [Concomitant]
     Active Substance: LEVOTHYROXINE SODIUM
     Route: 048
  20. ASPIRIN. [Concomitant]
     Active Substance: ASPIRIN
     Route: 048
  21. NITROGLYCERIN. [Concomitant]
     Active Substance: NITROGLYCERIN
     Dosage: 0.4 MG/HR PT24 APPLY ONE PATCH EACH MORNING AND REMOVE EACH

REACTIONS (2)
  - Breast cancer metastatic [Unknown]
  - Drug hypersensitivity [Unknown]
